FAERS Safety Report 4755895-9 (Version None)
Quarter: 2005Q3

REPORT INFORMATION
  Report Type: 
  Country: None (occurrence: None)
  Receive Date: 20050830
  Receipt Date: 20050728
  Transmission Date: 20060218
  Serious: No
  Sender: FDA-Public Use
  Company Number: US-BRISTOL-MYERS SQUIBB COMPANY-13053970

PATIENT
  Age: 78 Year
  Sex: Female

DRUGS (4)
  1. ERBITUX [Suspect]
     Indication: COLON CANCER
     Dates: start: 20050101
  2. CAMPTOSAR [Concomitant]
     Dates: start: 20050101
  3. SANDOSTATIN [Concomitant]
     Route: 030
  4. MEGACE [Concomitant]

REACTIONS (1)
  - WEIGHT DECREASED [None]
